FAERS Safety Report 9679884 (Version 1)
Quarter: 2013Q4

REPORT INFORMATION
  Report Type: Spontaneous
  Country: US (occurrence: US)
  Receive Date: 20131110
  Receipt Date: 20131110
  Transmission Date: 20140711
  Serious: Yes (Life-Threatening)
  Sender: FDA-Public Use
  Company Number: US-ROCHE-1298292

PATIENT
  Age: 55 Year
  Sex: Male
  Weight: 86.26 kg

DRUGS (5)
  1. VALIUM [Suspect]
     Indication: PRODUCT USED FOR UNKNOWN INDICATION
     Dosage: 2011 OR 2012
     Route: 065
  2. XANAX [Suspect]
     Indication: ANXIETY
     Route: 065
     Dates: start: 2000, end: 2012
  3. ADDERALL [Concomitant]
     Indication: ATTENTION DEFICIT/HYPERACTIVITY DISORDER
  4. CELEXA (UNITED STATES) [Concomitant]
     Indication: DEPRESSION
  5. AMBIEN [Concomitant]

REACTIONS (2)
  - Intervertebral disc protrusion [Unknown]
  - Intervertebral disc protrusion [Unknown]
